FAERS Safety Report 17744810 (Version 3)
Quarter: 2020Q2

REPORT INFORMATION
  Report Type: Spontaneous
  Country: US (occurrence: US)
  Receive Date: 20200505
  Receipt Date: 20200508
  Transmission Date: 20200714
  Serious: No
  Sender: FDA-Public Use
  Company Number: US-PFIZER INC-2020176516

PATIENT
  Age: 76 Year
  Sex: Female

DRUGS (1)
  1. SUTENT [Suspect]
     Active Substance: SUNITINIB MALATE
     Indication: PANCREATIC NEUROENDOCRINE TUMOUR METASTATIC
     Dosage: 37.5 MG, CYCLIC (DAILY FOR 7 DAYS FOLLOWED BY 7 DAYS OFF.REPEAT EVERY 14 DAYS. CYCLE IS 28 DAYS)
     Route: 048

REACTIONS (4)
  - Dysstasia [Unknown]
  - Asthenia [Unknown]
  - Off label use [Unknown]
  - Malaise [Unknown]
